FAERS Safety Report 16848178 (Version 1)
Quarter: 2019Q3

REPORT INFORMATION
  Report Type: Spontaneous
  Country: RO (occurrence: RO)
  Receive Date: 20190925
  Receipt Date: 20190925
  Transmission Date: 20191005
  Serious: Yes (Hospitalization, Other)
  Sender: FDA-Public Use
  Company Number: RO-MICRO LABS LIMITED-ML2019-02490

PATIENT
  Age: 52 Year
  Sex: Male

DRUGS (3)
  1. VERAPAMIL HYDROCHLORIDE. [Suspect]
     Active Substance: VERAPAMIL HYDROCHLORIDE
     Indication: ARRHYTHMIA
  2. ADENOSINE. [Suspect]
     Active Substance: ADENOSINE
     Indication: ARRHYTHMIA
     Route: 042
  3. AMIODARONE [Suspect]
     Active Substance: AMIODARONE
     Indication: ARRHYTHMIA

REACTIONS (1)
  - Drug ineffective [Unknown]
